FAERS Safety Report 4930809-7 (Version None)
Quarter: 2006Q1

REPORT INFORMATION
  Report Type: 
  Country: None (occurrence: None)
  Receive Date: 20060227
  Receipt Date: 20060209
  Transmission Date: 20060701
  Serious: Yes (Death)
  Sender: FDA-Public Use
  Company Number: 221963

PATIENT
  Age: 53 Year
  Sex: Female

DRUGS (4)
  1. AVASTIN [Suspect]
     Indication: COLON CANCER
     Dosage: 240 MG, INTRAVENOUS
     Route: 042
     Dates: start: 20051110, end: 20051110
  2. CAMPTOSAR [Suspect]
     Indication: COLON CANCER
     Dosage: 180 M G/M2, INTRAVENOUS
     Route: 042
     Dates: end: 20051110
  3. FLUOROURACIL [Suspect]
     Indication: COLON CANCER
     Dosage: 2400 MG/M2, INTRAVENOUS
     Route: 042
     Dates: end: 20051111
  4. ELVORINE (LEVOLEUCOVORIN CALCIUM) [Concomitant]

REACTIONS (8)
  - ASTHENIA [None]
  - DISSEMINATED INTRAVASCULAR COAGULATION [None]
  - FALL [None]
  - GASTROINTESTINAL DISORDER [None]
  - PALLOR [None]
  - POST PROCEDURAL COMPLICATION [None]
  - RECTAL HAEMORRHAGE [None]
  - SHOCK HAEMORRHAGIC [None]
